FAERS Safety Report 4429990-8 (Version None)
Quarter: 2004Q3

REPORT INFORMATION
  Report Type: 
  Country: None (occurrence: None)
  Receive Date: 20040817
  Receipt Date: 20040812
  Transmission Date: 20050211
  Serious: Yes (Disabling)
  Sender: FDA-Public Use
  Company Number: HQWYE971105AUG04

PATIENT
  Sex: Female

DRUGS (1)
  1. EFFEXOR XR [Suspect]
     Indication: DEPRESSION
     Dosage: APPROXIMATELY 150 MG DAILY;  WEANED OFF THERAPY,

REACTIONS (3)
  - DRUG WITHDRAWAL SYNDROME [None]
  - DYSKINESIA [None]
  - WEIGHT DECREASED [None]
